FAERS Safety Report 25630142 (Version 2)
Quarter: 2025Q3

REPORT INFORMATION
  Report Type: Report from Study
  Country: US (occurrence: US)
  Receive Date: 20250801
  Receipt Date: 20250902
  Transmission Date: 20251020
  Serious: No
  Sender: SUNOVION
  Company Number: US-SMPA-2025SPA009454AA

PATIENT
  Age: 48 Year
  Sex: Male

DRUGS (8)
  1. ORGOVYX [Suspect]
     Active Substance: RELUGOLIX
     Indication: Prostate cancer
     Route: 048
  2. ORGOVYX [Suspect]
     Active Substance: RELUGOLIX
     Route: 048
  3. ALEVE [Concomitant]
     Active Substance: NAPROXEN SODIUM
  4. CLARITIN [Concomitant]
     Active Substance: LORATADINE
  5. GABAPENTIN [Concomitant]
     Active Substance: GABAPENTIN
  6. ROSUVASTATIN [Concomitant]
     Active Substance: ROSUVASTATIN
  7. TYLENOL [Concomitant]
     Active Substance: ACETAMINOPHEN
  8. ZYRTEC [Concomitant]
     Active Substance: CETIRIZINE HYDROCHLORIDE

REACTIONS (5)
  - Increased appetite [Unknown]
  - Sluggishness [Unknown]
  - Hot flush [Unknown]
  - Back pain [Unknown]
  - Diarrhoea [Unknown]
